FAERS Safety Report 19207236 (Version 1)
Quarter: 2021Q2

REPORT INFORMATION
  Report Type: Report from Study
  Country: CA (occurrence: CA)
  Receive Date: 20210501
  Receipt Date: 20210501
  Transmission Date: 20210717
  Serious: Yes (Death)
  Sender: FDA-Public Use
  Company Number: CA-ASTRAZENECA-2021A372105

PATIENT
  Sex: Female

DRUGS (2)
  1. GIOTRIF (AFATINIB) [Concomitant]
     Route: 065
     Dates: start: 20160215, end: 20180514
  2. TAGRISSO [Suspect]
     Active Substance: OSIMERTINIB
     Indication: NON-SMALL CELL LUNG CANCER METASTATIC
     Route: 048
     Dates: start: 20180518

REACTIONS (1)
  - Death [Fatal]
